FAERS Safety Report 19123758 (Version 2)
Quarter: 2021Q2

REPORT INFORMATION
  Report Type: Other
  Country: DE (occurrence: DE)
  Receive Date: 20210412
  Receipt Date: 20210427
  Transmission Date: 20210717
  Serious: No
  Sender: FDA-Public Use
  Company Number: DE-ROCHE-2802043

PATIENT
  Age: 45 Year
  Sex: Female
  Weight: 95 kg

DRUGS (13)
  1. AERIUS [Concomitant]
     Route: 048
     Dates: start: 20190205, end: 20190207
  2. PREDNISOLON [Concomitant]
     Active Substance: PREDNISOLONE
     Route: 042
     Dates: start: 20190220, end: 20190220
  3. AERIUS [Concomitant]
     Route: 048
     Dates: start: 20190219, end: 20190221
  4. DEKRISTOL [Concomitant]
     Active Substance: CHOLECALCIFEROL
     Indication: VITAMIN D DEFICIENCY
     Route: 048
     Dates: start: 20150203
  5. CITALOPRAM [Concomitant]
     Active Substance: CITALOPRAM HYDROBROMIDE
  6. RANITIDINE. [Concomitant]
     Active Substance: RANITIDINE
     Route: 048
     Dates: start: 20190205, end: 20190207
  7. PREDNISOLON [Concomitant]
     Active Substance: PREDNISOLONE
     Route: 042
     Dates: start: 20190206, end: 20190206
  8. OCRELIZUMAB. [Suspect]
     Active Substance: OCRELIZUMAB
     Indication: RELAPSING MULTIPLE SCLEROSIS
     Route: 042
     Dates: start: 20190823
  9. OCRELIZUMAB. [Suspect]
     Active Substance: OCRELIZUMAB
     Route: 042
     Dates: start: 20190206, end: 20190220
  10. RANITIDINE. [Concomitant]
     Active Substance: RANITIDINE
     Route: 048
     Dates: start: 20190219, end: 20190221
  11. GLATIRAMERACETAT [Concomitant]
     Dates: start: 201502, end: 2015
  12. IBUPROFEN. [Concomitant]
     Active Substance: IBUPROFEN
  13. FINGOLIMOD. [Concomitant]
     Active Substance: FINGOLIMOD
     Dates: start: 20180423, end: 20180719

REACTIONS (1)
  - COVID-19 [Recovered/Resolved]

NARRATIVE: CASE EVENT DATE: 20210112
